FAERS Safety Report 15023540 (Version 1)
Quarter: 2018Q2

REPORT INFORMATION
  Report Type: Report from Study
  Country: NL (occurrence: NL)
  Receive Date: 20180618
  Receipt Date: 20180618
  Transmission Date: 20180711
  Serious: Yes (Hospitalization, Other)
  Sender: FDA-Public Use
  Company Number: PHHY2018NL022840

PATIENT
  Age: 63 Year
  Sex: Female

DRUGS (1)
  1. SANDOSTATIN LAR DEPOT [Suspect]
     Active Substance: OCTREOTIDE ACETATE
     Indication: NEUROENDOCRINE TUMOUR
     Dosage: 20 MG/2ML, QMO
     Route: 030

REACTIONS (2)
  - Cholelithiasis [Recovered/Resolved]
  - Bile duct obstruction [Unknown]

NARRATIVE: CASE EVENT DATE: 20180606
